FAERS Safety Report 7308319-1 (Version None)
Quarter: 2011Q1

REPORT INFORMATION
  Report Type: 
  Country: None (occurrence: None)
  Receive Date: 20110223
  Receipt Date: 20110217
  Transmission Date: 20110831
  Serious: Yes (Other)
  Sender: FDA-Public Use
  Company Number: A0914724A

PATIENT
  Sex: Male

DRUGS (2)
  1. ROMIPLOSTIM [Concomitant]
  2. PROMACTA [Suspect]
     Indication: ILL-DEFINED DISORDER

REACTIONS (4)
  - DISEASE PROGRESSION [None]
  - DRUG INEFFECTIVE [None]
  - NEOPLASM MALIGNANT [None]
  - HAEMATOLOGICAL MALIGNANCY [None]
